FAERS Safety Report 4440534-7 (Version None)
Quarter: 2004Q3

REPORT INFORMATION
  Report Type: 
  Country: None (occurrence: None)
  Receive Date: 20040831
  Receipt Date: 20040318
  Transmission Date: 20050211
  Serious: Yes (Hospitalization)
  Sender: FDA-Public Use
  Company Number: US011004

PATIENT
  Age: 44 Year
  Sex: Female

DRUGS (16)
  1. GABITRIL [Suspect]
     Indication: ANXIETY
     Dosage: 2 MG QPM ORAL
     Route: 048
     Dates: start: 20030212, end: 20030218
  2. GABITRIL [Suspect]
     Indication: BIPOLAR DISORDER
     Dosage: 2 MG QPM ORAL
     Route: 048
     Dates: start: 20030212, end: 20030218
  3. GABITRIL [Suspect]
     Indication: ANXIETY
     Dosage: 2 MG BID ORAL
     Route: 048
     Dates: start: 20030219, end: 20030304
  4. GABITRIL [Suspect]
     Indication: BIPOLAR DISORDER
     Dosage: 2 MG BID ORAL
     Route: 048
     Dates: start: 20030219, end: 20030304
  5. GABITRIL [Suspect]
     Indication: ANXIETY
     Dosage: 2 MG TID ORAL
     Route: 048
     Dates: start: 20030305, end: 20030311
  6. GABITRIL [Suspect]
     Indication: BIPOLAR DISORDER
     Dosage: 2 MG TID ORAL
     Route: 048
     Dates: start: 20030305, end: 20030311
  7. GABITRIL [Suspect]
     Indication: ANXIETY
     Dosage: 4 MG BID ORAL
     Route: 048
     Dates: start: 20030312, end: 20030513
  8. GABITRIL [Suspect]
     Indication: BIPOLAR DISORDER
     Dosage: 4 MG BID ORAL
     Route: 048
     Dates: start: 20030312, end: 20030513
  9. XANAX [Concomitant]
  10. ZOLOFT [Concomitant]
  11. TRAZODONE [Concomitant]
  12. SONATA [Concomitant]
  13. PREVACID [Concomitant]
  14. PHENERGAN ^NATRAPHARM^ [Concomitant]
  15. VICODIN [Concomitant]
  16. IMITREX [Concomitant]

REACTIONS (3)
  - ENCEPHALOPATHY [None]
  - EYE MOVEMENT DISORDER [None]
  - VISUAL FIELD DEFECT [None]
